FAERS Safety Report 4376055-X (Version None)
Quarter: 2004Q2

REPORT INFORMATION
  Report Type: 
  Country: None (occurrence: None)
  Receive Date: 20040611
  Receipt Date: 20040603
  Transmission Date: 20050107
  Serious: Yes (Hospitalization)
  Sender: FDA-Public Use
  Company Number: DE-MERCK-0406DEU00056

PATIENT
  Sex: Female

DRUGS (7)
  1. [THERAPY UNSPECIFIED] [Concomitant]
     Route: 065
  2. FUROSEMIDE [Concomitant]
     Route: 048
  3. IBUPROFEN [Concomitant]
     Route: 048
  4. IBUPROFEN [Concomitant]
     Route: 048
  5. METHOTREXATE [Concomitant]
     Route: 048
  6. VIOXX [Suspect]
     Indication: OSTEOARTHRITIS
     Route: 048
     Dates: start: 20040303, end: 20040501
  7. TRAMADOL HYDROCHLORIDE [Concomitant]
     Route: 048

REACTIONS (2)
  - RENAL FAILURE [None]
  - VARICOSE VEIN [None]
